FAERS Safety Report 9643843 (Version 4)
Quarter: 2014Q3

REPORT INFORMATION
  Report Type: Spontaneous
  Country: CA (occurrence: None)
  Receive Date: 20131023
  Receipt Date: 20140918
  Transmission Date: 20150326
  Serious: Yes (Hospitalization)
  Sender: FDA-Public Use
  Company Number: 1954224

PATIENT
  Age: 75 Year
  Sex: Female
  Weight: 95 kg

DRUGS (29)
  1. CISPLATIN. [Suspect]
     Active Substance: CISPLATIN
     Indication: DIFFUSE LARGE B-CELL LYMPHOMA
     Dosage: 112 MG MILLIGRAM(S), 1 DAY, INTRAVENOUS (NOT OTHERWISE SPECIFIED)
     Route: 042
     Dates: start: 20130823
  2. DEXAMETHASONE. [Suspect]
     Active Substance: DEXAMETHASONE
     Dosage: 12 MG MILLIGRAM(S), 1 DAY, ORAL
     Route: 048
     Dates: start: 20130823
  3. NORMAL SALINE [Concomitant]
     Active Substance: SODIUM CHLORIDE
  4. RITUXIMAB [Concomitant]
     Active Substance: RITUXIMAB
  5. FUROSEMIDE. [Concomitant]
     Active Substance: FUROSEMIDE
  6. LEVOTHYROXINE [Concomitant]
     Active Substance: LEVOTHYROXINE
  7. VITAMIN D /00107901/ [Concomitant]
     Active Substance: ERGOCALCIFEROL
  8. GEMCITABINE HYDROCHLORIDE. [Suspect]
     Active Substance: GEMCITABINE HYDROCHLORIDE
     Indication: DIFFUSE LARGE B-CELL LYMPHOMA
     Dosage: 1501 MG MILLIGRAM(S), 1 DAY, INTRAVENOUS (NOT OTHERWISE SPECIFIED)
     Route: 042
     Dates: start: 20130823
  9. CISPLATIN. [Suspect]
     Active Substance: CISPLATIN
     Dosage: 112 MG MILLIGRAM(S), 1 DAY, INTRAVENOUS (NOT OTHERWISE SPECIFIED)
     Route: 042
     Dates: start: 20130823
  10. ASPIRIN. [Concomitant]
     Active Substance: ASPIRIN
  11. DOCUSATE SODIUM. [Concomitant]
     Active Substance: DOCUSATE SODIUM
  12. GLUCOSAMINE CHONDROITIN /01625901/ [Concomitant]
  13. OXYGEN. [Concomitant]
     Active Substance: OXYGEN
  14. METFORMIN [Concomitant]
     Active Substance: METFORMIN HYDROCHLORIDE
  15. RAMIPRIL. [Concomitant]
     Active Substance: RAMIPRIL
  16. PANTOPRAZOLE [Concomitant]
     Active Substance: PANTOPRAZOLE SODIUM
  17. BETAHISTINE [Concomitant]
     Active Substance: BETAHISTINE
  18. SENNA FRUIT EXTRACT [Concomitant]
     Active Substance: SENNA FRUIT EXTRACT
  19. MANNITOL. [Concomitant]
     Active Substance: MANNITOL
  20. GEMCITABINE HYDROCHLORIDE. [Suspect]
     Active Substance: GEMCITABINE HYDROCHLORIDE
     Dosage: 1501 MG MILLIGRAM(S), 1 DAY, INTRAVENOUS (NOT OTHERWISE SPECIFIED)
     Route: 042
     Dates: start: 20130823
  21. LORAZEPAM. [Concomitant]
     Active Substance: LORAZEPAM
  22. INOTUZUMAB [Concomitant]
     Active Substance: INOTUZUMAB OZOGAMICIN
  23. CORAL CALCIUM /07511201/ [Concomitant]
  24. CODEINE [Concomitant]
     Active Substance: CODEINE
  25. COD-LIVER OIL [Concomitant]
     Active Substance: FISH OIL
  26. DEXAMETHASONE. [Suspect]
     Active Substance: DEXAMETHASONE
     Indication: DIFFUSE LARGE B-CELL LYMPHOMA
     Dosage: 12 MG MILLIGRAM(S), 1 DAY, ORAL
     Route: 048
     Dates: start: 20130823
  27. NAPROXEN SODIUM. [Concomitant]
     Active Substance: NAPROXEN SODIUM
  28. ONDANSETRON [Concomitant]
     Active Substance: ONDANSETRON
  29. VITAMIN C /0008001/ [Concomitant]

REACTIONS (10)
  - Candida infection [None]
  - Malignant neoplasm progression [None]
  - Vomiting [None]
  - Diarrhoea [None]
  - Nausea [None]
  - Dehydration [None]
  - Thrombocytopenia [None]
  - Urinary tract infection [None]
  - Blood chloride decreased [None]
  - Hyponatraemia [None]

NARRATIVE: CASE EVENT DATE: 20130830
